FAERS Safety Report 5042564-3 (Version None)
Quarter: 2006Q2

REPORT INFORMATION
  Report Type: 
  Country: None (occurrence: None)
  Receive Date: 20060627
  Receipt Date: 20060613
  Transmission Date: 20061013
  Serious: Yes (Hospitalization)
  Sender: FDA-Public Use
  Company Number: 2006076041

PATIENT
  Age: 59 Year
  Sex: Male
  Weight: 74 kg

DRUGS (15)
  1. SUTENT [Suspect]
     Indication: RENAL CELL CARCINOMA STAGE UNSPECIFIED
     Dosage: 50 MG (50 MG, 1 IN 1 D), ORAL
     Route: 048
     Dates: start: 20060419, end: 20060517
  2. TORECAN [Concomitant]
  3. SPIRONOL (SPIRONOLACTONE) [Concomitant]
  4. FUROSEMIDE [Concomitant]
  5. GLUCOSE [Concomitant]
  6. SODIUM CHLORIDE [Concomitant]
  7. ACTRAPID (INSULIN) [Concomitant]
  8. CALCIUM GLUCONATE [Concomitant]
  9. FLUDROCORTISONE [Concomitant]
  10. HYDROCORTISONE [Concomitant]
  11. LANZUL (LANSOPRAZOLE) [Concomitant]
  12. TRAMADOL HCL [Concomitant]
  13. PARACETAMOL [Concomitant]
  14. KETONAL (KETOPROFEN) [Concomitant]
  15. BLOD AND RELATED PRODUCTS [Concomitant]

REACTIONS (7)
  - ANAEMIA [None]
  - ASCITES [None]
  - CACHEXIA [None]
  - ELECTROLYTE IMBALANCE [None]
  - FATIGUE [None]
  - FEELING ABNORMAL [None]
  - RENAL FAILURE [None]
